FAERS Safety Report 13181985 (Version 1)
Quarter: 2017Q1

REPORT INFORMATION
  Report Type: Spontaneous
  Country: US (occurrence: US)
  Receive Date: 20170202
  Receipt Date: 20170202
  Transmission Date: 20170428
  Serious: No
  Sender: FDA-Public Use
  Company Number: US-IMPAX LABORATORIES, INC-2016-IPXL-02514

PATIENT
  Age: 67 Year
  Sex: Male
  Weight: 85 kg

DRUGS (1)
  1. RYTARY [Suspect]
     Active Substance: CARBIDOPA\LEVODOPA
     Indication: PARKINSON^S DISEASE
     Dosage: 36.25/145 MG, ONE CAPSULE 3 /DAY
     Route: 048
     Dates: start: 20161216, end: 201612

REACTIONS (3)
  - Musculoskeletal stiffness [Recovering/Resolving]
  - Speech disorder [Unknown]
  - Tremor [Recovering/Resolving]
